FAERS Safety Report 6553615-9 (Version None)
Quarter: 2010Q1

REPORT INFORMATION
  Report Type: 
  Country: None (occurrence: None)
  Receive Date: 20100122
  Receipt Date: 20100112
  Transmission Date: 20100710
  Serious: Yes (Other)
  Sender: FDA-Public Use
  Company Number: 10-000058

PATIENT
  Age: 19 Year
  Sex: Female
  Weight: 54.4 kg

DRUGS (1)
  1. LOESTRIN 24 FE (NORETHINDRONE ACETATE, ETHINYL ESTRADIOL, FERROUS FUMA [Suspect]
     Indication: CONTRACEPTION
     Dosage: 20/1000 UG TABLET DAILY, ORAL
     Route: 048
     Dates: start: 20091102, end: 20091223

REACTIONS (3)
  - AMENORRHOEA [None]
  - BREAST MASS [None]
  - CHEST PAIN [None]
